FAERS Safety Report 12542433 (Version 1)
Quarter: 2016Q3

REPORT INFORMATION
  Report Type: Spontaneous
  Country: ES (occurrence: ES)
  Receive Date: 20160708
  Receipt Date: 20160708
  Transmission Date: 20161109
  Serious: Yes (Hospitalization, Other)
  Sender: FDA-Public Use
  Company Number: ES-ASTRAZENECA-2013SE80272

PATIENT
  Age: 69 Year
  Sex: Female
  Weight: 71.4 kg

DRUGS (5)
  1. ATORVASTATIN [Concomitant]
     Active Substance: ATORVASTATIN
     Dates: start: 20131020
  2. NITROGLICERIN [Concomitant]
     Active Substance: NITROGLYCERIN
     Dates: start: 20131019, end: 20131020
  3. METOPROLOL. [Concomitant]
     Active Substance: METOPROLOL
     Dates: start: 20131019, end: 20131021
  4. BRILIQUE [Suspect]
     Active Substance: TICAGRELOR
     Indication: ACUTE CORONARY SYNDROME
     Dosage: 180+90 MG/24H
     Route: 048
     Dates: start: 20131021, end: 20131023
  5. TIROFIBAN [Concomitant]
     Active Substance: TIROFIBAN
     Dosage: 0.4 MCG/K/MIN
     Dates: start: 20131019, end: 20131021

REACTIONS (2)
  - Atrioventricular block complete [Recovered/Resolved]
  - Hypotension [Recovered/Resolved]
